FAERS Safety Report 25167686 (Version 1)
Quarter: 2025Q2

REPORT INFORMATION
  Report Type: Spontaneous
  Country: US (occurrence: None)
  Receive Date: 20250404
  Receipt Date: 20250404
  Transmission Date: 20250717
  Serious: Yes (Hospitalization)
  Sender: FDA-CTU
  Company Number: None

PATIENT
  Age: 77 Year
  Sex: Female

DRUGS (1)
  1. POMALYST [Suspect]
     Active Substance: POMALIDOMIDE
     Indication: Plasma cell myeloma
     Dosage: FREQUENCY : DAILY;?
     Route: 048
     Dates: start: 20231228

REACTIONS (6)
  - Nausea [None]
  - Vomiting [None]
  - Hypokalaemia [None]
  - Hypomagnesaemia [None]
  - Troponin increased [None]
  - Atrial fibrillation [None]

NARRATIVE: CASE EVENT DATE: 20250331
